FAERS Safety Report 24783307 (Version 1)
Quarter: 2024Q4

REPORT INFORMATION
  Report Type: Spontaneous
  Country: US (occurrence: US)
  Receive Date: 20241227
  Receipt Date: 20241227
  Transmission Date: 20250114
  Serious: Yes (Other)
  Sender: PFIZER
  Company Number: US-PFIZER INC-PV202400165821

PATIENT
  Age: 63 Year
  Sex: Female
  Weight: 63.311 kg

DRUGS (22)
  1. IBRANCE [Suspect]
     Active Substance: PALBOCICLIB
     Indication: Breast cancer metastatic
     Dosage: 75 MG
     Route: 048
     Dates: start: 20220527
  2. IBRANCE [Suspect]
     Active Substance: PALBOCICLIB
     Indication: Bone cancer metastatic
     Dosage: 100 MG, CYCLIC
     Route: 048
     Dates: start: 20220919
  3. IBRANCE [Suspect]
     Active Substance: PALBOCICLIB
     Indication: Metastatic lymphoma
     Dosage: 100 MG, CYCLIC
     Route: 048
     Dates: start: 20221122
  4. IBRANCE [Suspect]
     Active Substance: PALBOCICLIB
     Indication: Pulmonary mass
     Dosage: 100 MG, CYCLIC
     Route: 048
     Dates: start: 20230127
  5. IBRANCE [Suspect]
     Active Substance: PALBOCICLIB
     Dosage: 100 MG, CYCLIC
     Route: 048
     Dates: start: 20230224
  6. IBRANCE [Suspect]
     Active Substance: PALBOCICLIB
     Dosage: 100 MG, CYCLIC
     Route: 048
     Dates: start: 20230508
  7. IBRANCE [Suspect]
     Active Substance: PALBOCICLIB
     Dosage: 100 MG, CYCLIC
     Route: 048
     Dates: start: 20230714
  8. IBRANCE [Suspect]
     Active Substance: PALBOCICLIB
     Dosage: 75 MG, CYCLIC
     Route: 048
     Dates: start: 20230818
  9. IBRANCE [Suspect]
     Active Substance: PALBOCICLIB
     Dosage: 75 MG, CYCLIC (FIRST CYCLE)
     Route: 048
     Dates: start: 20230915
  10. IBRANCE [Suspect]
     Active Substance: PALBOCICLIB
     Dosage: 75 MG, CYCLIC (COMPLETED ANOTHER CYCLE OF PALBOCICLIB)
     Route: 048
     Dates: end: 20231127
  11. IBRANCE [Suspect]
     Active Substance: PALBOCICLIB
     Dosage: 75 MG, CYCLIC (START NEW CYCLE OF PALBOCICLIB)
     Route: 048
     Dates: start: 20231204
  12. IBRANCE [Suspect]
     Active Substance: PALBOCICLIB
     Dosage: 75 MG, CYCLIC (3 WEEKS ON FOLLOWED BY 2 WEEKS OFF)
     Route: 048
     Dates: start: 20240110
  13. IBRANCE [Suspect]
     Active Substance: PALBOCICLIB
     Dosage: 75 MG, CYCLIC (ANOTHER CYCLE 3 WEEKS ON FOLLOWED BY 2 WEEKS OFF)
     Route: 048
  14. IBRANCE [Suspect]
     Active Substance: PALBOCICLIB
     Dosage: 75 MG, CYCLIC (MAY BEGIN 3 WEEKS ON FOLLOWED BY 2 WEEKS OFF)
     Route: 048
     Dates: start: 20240529
  15. IBRANCE [Suspect]
     Active Substance: PALBOCICLIB
     Dosage: 75 MG, CYCLIC (BEGIN ANOTHER CYCLE 3 WEEKS ON FOLLOWED BY 2 WEEKS OFF)
     Route: 048
     Dates: start: 20240703
  16. IBRANCE [Suspect]
     Active Substance: PALBOCICLIB
     Dosage: 75 MG, CYCLIC (STARTING ANOTHER CYCLE 3 WEEKS ON FOLLOWED BY 2 WEEKS OFF)
     Route: 048
     Dates: start: 20241121
  17. IBRANCE [Suspect]
     Active Substance: PALBOCICLIB
     Dosage: 75 MG, CYCLIC (1 TABLET ON DAYS 1-21 OF A 28 DAY CYCLE ORALLY ONCE A DAY)
     Route: 048
  18. ANASTROZOLE [Concomitant]
     Active Substance: ANASTROZOLE
     Indication: Breast cancer metastatic
     Dosage: UNK
  19. ANASTROZOLE [Concomitant]
     Active Substance: ANASTROZOLE
     Indication: Bone cancer metastatic
  20. ANASTROZOLE [Concomitant]
     Active Substance: ANASTROZOLE
     Indication: Metastatic lymphoma
  21. ANASTROZOLE [Concomitant]
     Active Substance: ANASTROZOLE
     Indication: Pulmonary mass
  22. DENOSUMAB [Concomitant]
     Active Substance: DENOSUMAB
     Dosage: UNK

REACTIONS (18)
  - Neutropenia [Unknown]
  - Thrombocytopenia [Unknown]
  - Dizziness [Unknown]
  - Orthostatic hypotension [Unknown]
  - Alanine aminotransferase increased [Unknown]
  - Aspartate aminotransferase increased [Unknown]
  - Albumin globulin ratio decreased [Unknown]
  - Blood alkaline phosphatase increased [Unknown]
  - Blood bilirubin increased [Unknown]
  - Blood glucose increased [Unknown]
  - Haemoglobin decreased [Unknown]
  - Globulins increased [Unknown]
  - Mean cell volume increased [Unknown]
  - Mean cell haemoglobin increased [Unknown]
  - Red blood cell count decreased [Unknown]
  - Red cell distribution width increased [Unknown]
  - White blood cell count decreased [Unknown]
  - Off label use [Unknown]
